FAERS Safety Report 8082848 (Version 2)
Quarter: 2014Q2

REPORT INFORMATION
  Report Type: Spontaneous
  Country: None (occurrence: None)
  Receive Date: 20110801
  Receipt Date: 20140415
  Transmission Date: 20141212
  Serious: Yes (Life-Threatening, Hospitalization, Other)
  Sender: FDA-Public Use
  Company Number: AUR-APL-2011-04381

PATIENT
  Age: 28 Year
  Sex: Female

DRUGS (1)
  1. LAMOTRIGINE (LAMOTRIGINE) [Suspect]
     Indication: EPILEPSY

REACTIONS (12)
  - Rash maculo-papular [None]
  - Pyrexia [None]
  - Face oedema [None]
  - Lymphadenopathy [None]
  - Anaemia [None]
  - Thrombocytopenia [None]
  - Lymphocyte morphology abnormal [None]
  - Haematuria [None]
  - Proteinuria [None]
  - Lung infiltration [None]
  - Drug reaction with eosinophilia and systemic symptoms [None]
  - Diarrhoea haemorrhagic [None]
